FAERS Safety Report 17558173 (Version 1)
Quarter: 2020Q1

REPORT INFORMATION
  Report Type: Spontaneous
  Country: US (occurrence: US)
  Receive Date: 20200319
  Receipt Date: 20200319
  Transmission Date: 20200409
  Serious: Yes (Other)
  Sender: FDA-Public Use
  Company Number: US-TEVA-2020-US-1204181

PATIENT
  Age: 22 Year
  Sex: Female

DRUGS (2)
  1. TIAGABINE [Suspect]
     Active Substance: TIAGABINE
     Indication: COMPLEX REGIONAL PAIN SYNDROME
     Dosage: INITIAL DOSAGE NOT STATED
     Route: 048
  2. TIAGABINE [Suspect]
     Active Substance: TIAGABINE
     Dosage: 32 MILLIGRAM DAILY;
     Route: 048

REACTIONS (1)
  - Toxic encephalopathy [Recovered/Resolved]
